FAERS Safety Report 4607178-5 (Version None)
Quarter: 2005Q1

REPORT INFORMATION
  Report Type: 
  Country: None (occurrence: None)
  Receive Date: 20050311
  Receipt Date: 20050311
  Transmission Date: 20050727
  Serious: Yes (Life-Threatening)
  Sender: FDA-Public Use
  Company Number: None

PATIENT
  Age: 14 Year
  Sex: Male
  Weight: 74 kg

DRUGS (1)
  1. RASBURICASE  11 MG [Suspect]
     Indication: BLOOD URIC ACID INCREASED
     Dosage: 11 MG IV X 1
     Route: 042
     Dates: start: 20050303

REACTIONS (2)
  - ANAPHYLACTIC REACTION [None]
  - OBSTRUCTIVE AIRWAYS DISORDER [None]
